FAERS Safety Report 4528881-1 (Version None)
Quarter: 2004Q4

REPORT INFORMATION
  Report Type: 
  Country: None (occurrence: None)
  Receive Date: 20041214
  Receipt Date: 20041201
  Transmission Date: 20050328
  Serious: Yes (Other)
  Sender: FDA-Public Use
  Company Number: GBR-2004-0001380

PATIENT
  Age: 75 Year
  Sex: Female

DRUGS (1)
  1. MORPHINE SULFATE [Suspect]
     Dates: start: 20020903

REACTIONS (10)
  - ASTHENIA [None]
  - BLOOD PRESSURE FLUCTUATION [None]
  - CARDIAC DISORDER [None]
  - DIPLOPIA [None]
  - EXTRAOCULAR MUSCLE DISORDER [None]
  - LOSS OF CONSCIOUSNESS [None]
  - MUSCLE STRAIN [None]
  - POST PROCEDURAL COMPLICATION [None]
  - STARING [None]
  - VOMITING [None]
